FAERS Safety Report 5726139-6 (Version None)
Quarter: 2008Q2

REPORT INFORMATION
  Report Type: 
  Country: None (occurrence: None)
  Receive Date: 20080502
  Receipt Date: 20080502
  Transmission Date: 20081010
  Serious: Yes (Death)
  Sender: FDA-Public Use
  Company Number: None

PATIENT
  Sex: Female

DRUGS (1)
  1. HEPARIN [Suspect]
     Indication: DIALYSIS
     Dosage: HEMODIALYSI
     Route: 010
     Dates: start: 20080201, end: 20080206

REACTIONS (1)
  - THERAPEUTIC PRODUCT CONTAMINATION [None]
